FAERS Safety Report 9364753 (Version 2)
Quarter: 2013Q3

REPORT INFORMATION
  Report Type: Spontaneous
  Country: CA (occurrence: CA)
  Receive Date: 20130624
  Receipt Date: 20130708
  Transmission Date: 20140515
  Serious: Yes (Other)
  Sender: FDA-Public Use
  Company Number: CA-JNJFOC-20130611796

PATIENT
  Age: 63 Year
  Sex: Female
  Weight: 92.7 kg

DRUGS (10)
  1. STELARA [Suspect]
     Indication: PSORIASIS
     Route: 058
     Dates: start: 20130219
  2. STELARA [Suspect]
     Indication: PSORIASIS
     Route: 058
     Dates: start: 20130309
  3. STELARA [Suspect]
     Indication: PSORIASIS
     Route: 058
     Dates: start: 20130409
  4. PANTOLOC [Concomitant]
     Route: 048
  5. CALCIUM [Concomitant]
     Route: 065
  6. ADVAIR [Concomitant]
     Route: 055
  7. ATACAND [Concomitant]
     Route: 048
  8. CRESTOR [Concomitant]
     Route: 048
  9. AZITHROMYCIN [Concomitant]
     Route: 065
  10. VENTOLIN [Concomitant]
     Route: 065

REACTIONS (3)
  - Bronchitis [Unknown]
  - Psoriasis [Unknown]
  - Malaise [Unknown]
